FAERS Safety Report 11569014 (Version 2)
Quarter: 2015Q4

REPORT INFORMATION
  Report Type: Spontaneous
  Country: JP (occurrence: JP)
  Receive Date: 20150929
  Receipt Date: 20151113
  Transmission Date: 20160304
  Serious: Yes (Death, Hospitalization)
  Sender: FDA-Public Use
  Company Number: JP-ELI_LILLY_AND_COMPANY-JP201509008687

PATIENT
  Age: 75 Year
  Sex: Male
  Weight: 50 kg

DRUGS (8)
  1. FRESMIN S                          /00091803/ [Concomitant]
     Dosage: UNK
     Route: 030
     Dates: start: 20150601
  2. CARBOPLATIN. [Concomitant]
     Active Substance: CARBOPLATIN
     Indication: LUNG ADENOCARCINOMA STAGE IV
     Dosage: 330 MG, OTHER
     Route: 042
     Dates: start: 20150610, end: 20150722
  3. OLMETEC [Concomitant]
     Active Substance: OLMESARTAN MEDOXOMIL
     Indication: HYPERTENSION
     Dosage: UNK
     Route: 048
  4. AVASTIN [Suspect]
     Active Substance: BEVACIZUMAB
     Indication: LUNG ADENOCARCINOMA STAGE IV
     Dosage: 800 MG, OTHER
     Route: 042
     Dates: start: 20150722, end: 20150722
  5. LIXIANA [Concomitant]
     Active Substance: EDOXABAN TOSILATE MONOHYDRATE
     Indication: PULMONARY THROMBOSIS
     Dosage: UNK
     Route: 048
     Dates: start: 20150608
  6. PANVITAN                           /05664401/ [Concomitant]
     Dosage: UNK
     Route: 048
     Dates: start: 20150601, end: 20150921
  7. CONIEL [Concomitant]
     Active Substance: BENIDIPINE HYDROCHLORIDE
     Indication: HYPERTENSION
     Dosage: UNK
     Route: 048
  8. ALIMTA [Suspect]
     Active Substance: PEMETREXED DISODIUM
     Indication: LUNG ADENOCARCINOMA STAGE IV
     Dosage: 500 MG/M2, OTHER
     Route: 042
     Dates: start: 20150610, end: 20150722

REACTIONS (7)
  - Malignant neoplasm progression [Fatal]
  - Decreased appetite [Unknown]
  - Multi-organ failure [Fatal]
  - Pneumonia bacterial [Fatal]
  - Respiratory failure [Fatal]
  - General physical health deterioration [Unknown]
  - Epistaxis [Unknown]

NARRATIVE: CASE EVENT DATE: 20150827
